FAERS Safety Report 15794290 (Version 1)
Quarter: 2019Q1

REPORT INFORMATION
  Report Type: Spontaneous
  Country: US (occurrence: US)
  Receive Date: 20190106
  Receipt Date: 20190106
  Transmission Date: 20190417
  Serious: Yes (Disabling)
  Sender: FDA-Public Use
  Company Number: None

PATIENT
  Age: 30 Year
  Sex: Female
  Weight: 45 kg

DRUGS (1)
  1. METHYLPREDNISOLONE 4 MG DOSEPK CADISTA [Suspect]
     Active Substance: METHYLPREDNISOLONE
     Indication: UPPER RESPIRATORY TRACT INFECTION
     Dosage: ?          QUANTITY:21 TABLET(S);OTHER FREQUENCY:MULTIPLE TIMES A D;?
     Route: 048
     Dates: start: 20190105, end: 20190106

REACTIONS (6)
  - Fatigue [None]
  - Asthenia [None]
  - Hypoaesthesia [None]
  - Insomnia [None]
  - Paraesthesia [None]
  - Pollakiuria [None]

NARRATIVE: CASE EVENT DATE: 20190105
